FAERS Safety Report 6187602-X (Version None)
Quarter: 2009Q2

REPORT INFORMATION
  Report Type: 
  Country: None (occurrence: None)
  Receive Date: 20090511
  Receipt Date: 20090429
  Transmission Date: 20091009
  Serious: Yes (Disabling)
  Sender: FDA-Public Use
  Company Number: 261281

PATIENT
  Age: 10 Year
  Sex: Male

DRUGS (10)
  1. CYTARABINE [Suspect]
     Indication: NERVOUS SYSTEM DISORDER
     Dosage: INTRATHECAL
     Route: 037
  2. CYTARABINE [Suspect]
     Indication: PROPHYLAXIS
     Dosage: INTRATHECAL
     Route: 037
  3. METHOTREXATE [Suspect]
     Indication: NERVOUS SYSTEM DISORDER
     Dosage: INTRATHECAL
     Route: 037
  4. METHOTREXATE [Suspect]
     Indication: PROPHYLAXIS
     Dosage: INTRATHECAL
     Route: 037
  5. (THERAPEUTIC RADIOPHARMACEUTICALS) [Suspect]
     Indication: NERVOUS SYSTEM DISORDER
  6. (THERAPEUTIC RADIOPHARMACEUTICALS) [Suspect]
     Indication: PROPHYLAXIS
  7. VINCRISTINE [Concomitant]
  8. PREDNISONE [Concomitant]
  9. ELSPAR [Concomitant]
  10. (DAUNOMYCIN /00128201/) [Concomitant]

REACTIONS (4)
  - COMPLEX PARTIAL SEIZURES [None]
  - NEUROTOXICITY [None]
  - RADIATION INJURY [None]
  - STATUS EPILEPTICUS [None]
